FAERS Safety Report 16424590 (Version 1)
Quarter: 2019Q2

REPORT INFORMATION
  Report Type: Spontaneous
  Country: GB (occurrence: GB)
  Receive Date: 20190613
  Receipt Date: 20190613
  Transmission Date: 20190711
  Serious: Yes (Hospitalization, Other)
  Sender: FDA-Public Use
  Company Number: GB-TEVA-2019-GB-1061607

PATIENT
  Age: 10 Year
  Sex: Female
  Weight: 28 kg

DRUGS (1)
  1. CO-AMOXICLAV [Suspect]
     Active Substance: AMOXICILLIN\CLAVULANATE POTASSIUM
     Indication: BACTERIAL INFECTION
     Dosage: STANDARD DOSE FOR WEIGHT
     Route: 042
     Dates: start: 20171213, end: 20171219

REACTIONS (2)
  - Pain [Recovering/Resolving]
  - Blood urine present [Recovered/Resolved]

NARRATIVE: CASE EVENT DATE: 20171214
